FAERS Safety Report 21696327 (Version 10)
Quarter: 2025Q1

REPORT INFORMATION
  Report Type: Spontaneous
  Country: GB (occurrence: GB)
  Receive Date: 20221207
  Receipt Date: 20250324
  Transmission Date: 20250408
  Serious: Yes (Hospitalization, Other)
  Sender: MYLAN
  Company Number: GB-MYLANLABS-2022M1135715

PATIENT
  Age: 34 Year
  Sex: Female

DRUGS (4)
  1. CLOZARIL [Suspect]
     Active Substance: CLOZAPINE
     Indication: Schizophrenia
     Dosage: 250 MILLIGRAM, QD (100 MG OM AND 150 MG ON)
     Dates: start: 20211018, end: 20221130
  2. CLOZARIL [Suspect]
     Active Substance: CLOZAPINE
     Dosage: 250 MILLIGRAM, QD (100 MG OM AND 150 MG ON)
     Dates: start: 20230404, end: 20230423
  3. CLOZARIL [Suspect]
     Active Substance: CLOZAPINE
  4. TRIHEXYPHENIDYL [Concomitant]
     Active Substance: TRIHEXYPHENIDYL
     Indication: Salivary hypersecretion
     Dosage: 10 MILLIGRAM, QD (OD)

REACTIONS (10)
  - Hospitalisation [Recovered/Resolved]
  - Cough [Recovered/Resolved]
  - Viral infection [Recovered/Resolved]
  - Chest discomfort [Recovered/Resolved]
  - Neutropenia [Recovered/Resolved]
  - Heart rate increased [Recovered/Resolved]
  - White blood cell count decreased [Recovered/Resolved]
  - Hypotension [Recovered/Resolved]
  - Oropharyngeal pain [Recovered/Resolved]
  - Eosinophil count decreased [Unknown]

NARRATIVE: CASE EVENT DATE: 20221130
